FAERS Safety Report 8836706 (Version 2)
Quarter: 2013Q1

REPORT INFORMATION
  Report Type: Spontaneous
  Country: IL (occurrence: None)
  Receive Date: 20121010
  Receipt Date: 20121109
  Transmission Date: 20140127
  Serious: Yes (Other)
  Sender: FDA-Public Use
  Company Number: IL-DEXPHARM-20121297

PATIENT
  Age: 58 Year
  Sex: Male

DRUGS (5)
  1. OMEPRAZOLE [Suspect]
     Indication: PEPTIC ULCER
  2. OMEPRAZOLE [Suspect]
     Indication: HELICOBACTER INFECTION
  3. CLARITHROMYCIN [Suspect]
     Indication: PEPTIC ULCER
  4. CLARITHROMYCIN [Suspect]
     Indication: HELICOBACTER INFECTION
  5. CARBAMAZEPINE [Suspect]
     Indication: GRAND MAL CONVULSION

REACTIONS (5)
  - Ataxia [None]
  - Drug interaction [None]
  - Vertigo [None]
  - Toxicity to various agents [None]
  - Anticonvulsant drug level above therapeutic [None]
